FAERS Safety Report 19995007 (Version 1)
Quarter: 2021Q4

REPORT INFORMATION
  Report Type: Spontaneous
  Country: US (occurrence: US)
  Receive Date: 20211025
  Receipt Date: 20211025
  Transmission Date: 20220303
  Serious: Yes (Hospitalization, Disabling)
  Sender: FDA-Public Use
  Company Number: None

PATIENT
  Age: 66 Year
  Sex: Male
  Weight: 99.79 kg

DRUGS (19)
  1. HYDROMORPHONE [Suspect]
     Active Substance: HYDROMORPHONE
     Indication: Pain
     Dates: start: 20171229, end: 20200214
  2. GABAPENTIN [Concomitant]
     Active Substance: GABAPENTIN
  3. LIPITOR [Concomitant]
     Active Substance: ATORVASTATIN CALCIUM
  4. FLORINEF ACETATE [Concomitant]
     Active Substance: FLUDROCORTISONE ACETATE
  5. ELAVIL [Concomitant]
     Active Substance: AMITRIPTYLINE HYDROCHLORIDE
  6. PANTOPRAZOLE [Concomitant]
     Active Substance: PANTOPRAZOLE
  7. ELEQUIS [Concomitant]
  8. DESVENLAFAXINE [Concomitant]
     Active Substance: DESVENLAFAXINE
  9. LIDOCAINE [Concomitant]
     Active Substance: LIDOCAINE
  10. MIDRODINE [Concomitant]
  11. LORAZEPAM [Concomitant]
     Active Substance: LORAZEPAM
  12. BACLOFEN [Concomitant]
     Active Substance: BACLOFEN
  13. OXYBUTYNIN. [Concomitant]
     Active Substance: OXYBUTYNIN CHLORIDE
  14. PREGABALIN [Concomitant]
     Active Substance: PREGABALIN
  15. DICLOFENAC [Concomitant]
     Active Substance: DICLOFENAC
  16. BUPROPN [Concomitant]
  17. VITAMIN E [Concomitant]
     Active Substance: .ALPHA.-TOCOPHEROL
  18. VITAMIN C [Concomitant]
     Active Substance: ASCORBIC ACID
  19. VITAMINS [Concomitant]
     Active Substance: VITAMINS

REACTIONS (4)
  - Myelitis transverse [None]
  - Spinal cord injury [None]
  - Inflammation [None]
  - Spinal cord infection [None]

NARRATIVE: CASE EVENT DATE: 20200210
